FAERS Safety Report 8034214-9 (Version None)
Quarter: 2012Q1

REPORT INFORMATION
  Report Type: 
  Country: None (occurrence: None)
  Receive Date: 20120110
  Receipt Date: 20120105
  Transmission Date: 20120608
  Serious: Yes (Other)
  Sender: FDA-Public Use
  Company Number: BR-JNJFOC-20111211529

PATIENT
  Sex: Female
  Weight: 49 kg

DRUGS (3)
  1. NICORETTE [Suspect]
     Indication: SMOKING CESSATION THERAPY
     Dosage: NINE PIECES A DAY
     Route: 048
     Dates: start: 20110901, end: 20111201
  2. NICORETTE [Suspect]
     Indication: SMOKING CESSATION THERAPY
     Dosage: TWICE
     Route: 062
  3. NICORETTE [Suspect]
     Route: 062

REACTIONS (8)
  - INTENTIONAL DRUG MISUSE [None]
  - ANXIETY [None]
  - GLOSSODYNIA [None]
  - SKIN LESION [None]
  - MOUTH INJURY [None]
  - OVERDOSE [None]
  - FACIAL PAIN [None]
  - MALAISE [None]
